FAERS Safety Report 10895969 (Version 2)
Quarter: 2015Q1

REPORT INFORMATION
  Report Type: Spontaneous
  Country: GB (occurrence: GB)
  Receive Date: 20150308
  Receipt Date: 20150319
  Transmission Date: 20150721
  Serious: Yes (Other)
  Sender: FDA-Public Use
  Company Number: GB-TEVA-543390ACC

PATIENT
  Age: 76 Year
  Sex: Male

DRUGS (2)
  1. ESOMEPRAZOLE [Suspect]
     Active Substance: ESOMEPRAZOLE
     Indication: HYPERCHLORHYDRIA
     Dosage: 40 MILLIGRAM DAILY; 40 MG, DAILY, NOCTE, GASTRO-RESISTANT TABLET
     Route: 048
  2. LISINOPRIL. [Concomitant]
     Active Substance: LISINOPRIL
     Indication: HYPERTENSION
     Dosage: 20 MILLIGRAM DAILY;
     Route: 065

REACTIONS (4)
  - Serum ferritin decreased [Unknown]
  - Rectal haemorrhage [Unknown]
  - Angiodysplasia [Unknown]
  - Haemoglobin decreased [Unknown]
